FAERS Safety Report 4601986-2 (Version None)
Quarter: 2005Q2

REPORT INFORMATION
  Report Type: 
  Country: None (occurrence: None)
  Receive Date: 20050201
  Receipt Date: 20041230
  Transmission Date: 20051028
  Serious: Yes (Other)
  Sender: FDA-Public Use
  Company Number: 200421245BWH

PATIENT
  Age: 38 Year
  Sex: Female
  Weight: 90.7194 kg

DRUGS (1)
  1. CIPRO XR [Suspect]
     Indication: URINARY TRACT INFECTION
     Dosage: 500 MG, QD; ORAL
     Route: 048
     Dates: start: 20041214, end: 20041216

REACTIONS (15)
  - ANOREXIA [None]
  - BACK PAIN [None]
  - CANDIDIASIS [None]
  - CONFUSIONAL STATE [None]
  - DELUSION [None]
  - DIARRHOEA [None]
  - FALL [None]
  - FEELING ABNORMAL [None]
  - HALO VISION [None]
  - HEADACHE [None]
  - OEDEMA PERIPHERAL [None]
  - PARANOIA [None]
  - PRURITUS [None]
  - SOMNOLENCE [None]
  - VISION BLURRED [None]
